FAERS Safety Report 5018093-X (Version None)
Quarter: 2006Q2

REPORT INFORMATION
  Report Type: 
  Country: None (occurrence: None)
  Receive Date: 20060525
  Receipt Date: 20060505
  Transmission Date: 20061013
  Serious: Yes (Other)
  Sender: FDA-Public Use
  Company Number: US200601000927

PATIENT
  Age: 43 Year
  Sex: Female

DRUGS (39)
  1. FORTEO [Suspect]
     Indication: OSTEOPENIA
     Dosage: 20 UG, DAILY (1/D),
     Dates: start: 20051219, end: 20060321
  2. FORTEO [Concomitant]
  3. CALCIUM CARBONATE (CALCIUM CARBONATE) [Concomitant]
  4. IRON W/VITAMINS NOS (IRON, VITAMINS NOS) [Concomitant]
  5. ADVAIR DISKUS 100/50 [Concomitant]
  6. ASMANEX [Concomitant]
  7. ASTELIN [Concomitant]
  8. ASPIRIN [Concomitant]
  9. CALTRATE + D (CALCIUM CARBONATE, COLECALCIFEROL) [Concomitant]
  10. DITROPAN /SCH/(OXYBURYNIN HYDROCHLORIDE) [Concomitant]
  11. DURAGESIC-100 [Concomitant]
  12. EFFEXOR [Concomitant]
  13. ELAVIL (AMTRIPTYLINE HYDROCHLORIDE) [Concomitant]
  14. ELMIRON [Concomitant]
  15. ENDAL (GUAIFENESIN, PHENYLEPHEDRINE HYDROCHLORIDE) [Concomitant]
  16. ESTRATEST [Concomitant]
  17. FLONASE [Concomitant]
  18. HUMULIN REGULAR (INSULIN HUMAN) [Concomitant]
  19. KLONPIN (CLONAZEPAM) [Concomitant]
  20. LEVSIN (HYOSCYAMINE SULFATE) [Concomitant]
  21. PREGABALIN (PREGABALIN) [Concomitant]
  22. MAXAIR [Concomitant]
  23. MONOPRIL [Concomitant]
  24. MOTRIN [Concomitant]
  25. NEXIUM /UNK/(ESOMEPRAZOLE) [Concomitant]
  26. NYSTATIN [Concomitant]
  27. PHENERGAN (PROMETHAZINE HYDROCHLORIDE) [Concomitant]
  28. PREDNISONE TAB [Concomitant]
  29. PHENAZOPYRIDINE HCL TAB [Concomitant]
  30. SINGULAIR [Concomitant]
  31. TYLENOL /USA/ (PARACETAMOL) [Concomitant]
  32. VERAPAMIL [Concomitant]
  33. XANAX /USA/(ALPRAZOLAM) [Concomitant]
  34. ZANAFLEX [Concomitant]
  35. ZELNORM /CAN/ (TEGASEROD MALEATE) [Concomitant]
  36. ZOCOR [Concomitant]
  37. ZOVIRAX [Concomitant]
  38. ZYRTEC [Concomitant]
  39. FORTEO [Suspect]
     Dates: end: 20060321

REACTIONS (12)
  - ANAEMIA [None]
  - BEDRIDDEN [None]
  - BLOOD IRON DECREASED [None]
  - DIZZINESS [None]
  - DYSSTASIA [None]
  - HYPOKINESIA [None]
  - MUSCLE SPASMS [None]
  - MUSCULAR WEAKNESS [None]
  - MYALGIA [None]
  - NAUSEA [None]
  - PAIN [None]
  - PHARMACEUTICAL PRODUCT COMPLAINT [None]
